FAERS Safety Report 8858491 (Version 1)
Quarter: 2012Q4

REPORT INFORMATION
  Report Type: 
  Country: US (occurrence: US)
  Receive Date: 20121024
  Receipt Date: 20121024
  Transmission Date: 20130627
  Serious: Yes (Other)
  Sender: FDA-Public Use
  Company Number: US-BAYER-2012-111635

PATIENT
  Sex: Male

DRUGS (1)
  1. AVELOX [Suspect]
     Indication: SINUS INFECTION
     Dosage: 400 mg, QOD
     Route: 048

REACTIONS (2)
  - Retinal detachment [Recovering/Resolving]
  - Vision blurred [Recovering/Resolving]
